FAERS Safety Report 10217606 (Version 2)
Quarter: 2014Q2

REPORT INFORMATION
  Report Type: Report from Study
  Country: DE (occurrence: DE)
  Receive Date: 20140604
  Receipt Date: 20140612
  Transmission Date: 20141212
  Serious: Yes (Death, Other)
  Sender: FDA-Public Use
  Company Number: DE-GILEAD-2014-0104152

PATIENT
  Sex: Male

DRUGS (1)
  1. EMTRICITABINE/RILPIVIRINE/TENOFOVIR DF [Suspect]
     Indication: HIV INFECTION
     Dosage: UNK
     Route: 065
     Dates: start: 20120418

REACTIONS (1)
  - Completed suicide [Fatal]
